FAERS Safety Report 7532036-6 (Version None)
Quarter: 2011Q2

REPORT INFORMATION
  Report Type: 
  Country: None (occurrence: None)
  Receive Date: 20110608
  Receipt Date: 20110531
  Transmission Date: 20111010
  Serious: Yes (Death)
  Sender: FDA-Public Use
  Company Number: DE-BAXTER-2011BH013115

PATIENT
  Age: 76 Year
  Sex: Male

DRUGS (4)
  1. SODIUM CHLORIDE 0.9% IN PLASTIC CONTAINER [Suspect]
     Indication: PRODUCT USED FOR UNKNOWN INDICATION
     Route: 065
  2. OLIMEL [Suspect]
     Indication: NEOPLASM MALIGNANT
     Route: 065
     Dates: start: 20110406, end: 20110422
  3. CERNEVIT-12 [Suspect]
     Indication: NEOPLASM MALIGNANT
     Route: 065
     Dates: start: 20110406, end: 20110422
  4. ADDEL N [Suspect]
     Indication: NEOPLASM MALIGNANT
     Route: 065
     Dates: start: 20110406, end: 20110422

REACTIONS (1)
  - DEATH [None]
